FAERS Safety Report 9728048 (Version 1)
Quarter: 2013Q4

REPORT INFORMATION
  Report Type: Spontaneous
  Country: US (occurrence: None)
  Receive Date: 20131203
  Receipt Date: 20131203
  Transmission Date: 20140711
  Serious: No
  Sender: FDA-Public Use
  Company Number: None

PATIENT
  Age: 54 Year
  Sex: Female
  Weight: 52.62 kg

DRUGS (1)
  1. NITROFURANTOIN [Suspect]
     Indication: URINARY TRACT INFECTION
     Route: 048
     Dates: start: 20131126, end: 20131126

REACTIONS (6)
  - Headache [None]
  - Nausea [None]
  - Vomiting [None]
  - Myalgia [None]
  - Pyrexia [None]
  - Night sweats [None]
